FAERS Safety Report 7787615-8 (Version None)
Quarter: 2011Q3

REPORT INFORMATION
  Report Type: 
  Country: None (occurrence: None)
  Receive Date: 20110929
  Receipt Date: 20110920
  Transmission Date: 20111222
  Serious: Yes (Hospitalization)
  Sender: FDA-Public Use
  Company Number: US-BAYER-2011-007240

PATIENT
  Age: 32 Year
  Sex: Female
  Weight: 52.154 kg

DRUGS (1)
  1. YASMIN [Suspect]
     Indication: CONTRACEPTION
     Dosage: UNK
     Route: 048
     Dates: start: 20061201, end: 20090801

REACTIONS (3)
  - PAIN [None]
  - CHOLELITHIASIS [None]
  - GALLBLADDER DISORDER [None]
